FAERS Safety Report 23127553 (Version 2)
Quarter: 2023Q4

REPORT INFORMATION
  Report Type: Spontaneous
  Country: IT (occurrence: IT)
  Receive Date: 20231031
  Receipt Date: 20231106
  Transmission Date: 20240110
  Serious: Yes (Hospitalization)
  Sender: FDA-Public Use
  Company Number: IT-BoehringerIngelheim-2023-BI-269182

PATIENT
  Age: 94 Year
  Sex: Female

DRUGS (2)
  1. DABIGATRAN [Suspect]
     Active Substance: DABIGATRAN
     Indication: Atrial fibrillation
     Route: 048
  2. VERAPAMIL [Concomitant]
     Active Substance: VERAPAMIL HYDROCHLORIDE
     Indication: Product used for unknown indication

REACTIONS (7)
  - Anticoagulation drug level increased [Recovered/Resolved]
  - Anuria [Unknown]
  - Anaemia [Unknown]
  - Renal impairment [Unknown]
  - Coagulation time prolonged [Recovered/Resolved]
  - Hypercreatininaemia [Unknown]
  - Sopor [Unknown]
